FAERS Safety Report 10010678 (Version 1)
Quarter: 2014Q1

REPORT INFORMATION
  Report Type: Spontaneous
  Country: GB (occurrence: GB)
  Receive Date: 20140314
  Receipt Date: 20140314
  Transmission Date: 20141002
  Serious: Yes (Other)
  Sender: FDA-Public Use
  Company Number: GB-RANBAXY-2014RR-78790

PATIENT
  Sex: 0

DRUGS (2)
  1. GABAPENTIN [Suspect]
     Indication: NEURALGIA
     Dosage: 600MG TWICE DAILY + 1200MG AT NIGHT
     Route: 048
     Dates: start: 201303, end: 201402
  2. PARACETAMOL [Concomitant]
     Indication: PAIN
     Dosage: 1 G, QID
     Route: 048
     Dates: start: 2013

REACTIONS (2)
  - Tooth loss [Not Recovered/Not Resolved]
  - Gingival pain [Not Recovered/Not Resolved]
